FAERS Safety Report 9356191 (Version 1)
Quarter: 2013Q2

REPORT INFORMATION
  Report Type: Spontaneous
  Country: FR (occurrence: FR)
  Receive Date: 20130619
  Receipt Date: 20130619
  Transmission Date: 20140414
  Serious: Yes (Hospitalization)
  Sender: FDA-Public Use
  Company Number: FR-GLAXOSMITHKLINE-B0889229A

PATIENT
  Age: 27 Year
  Sex: Male

DRUGS (4)
  1. TROBALT [Suspect]
     Indication: EPILEPSY
     Route: 048
     Dates: start: 20130402, end: 20130428
  2. DEPAKINE [Concomitant]
     Indication: FRONTAL LOBE EPILEPSY
     Route: 065
  3. KEPPRA [Concomitant]
     Indication: FRONTAL LOBE EPILEPSY
     Dosage: 500MG SIX TIMES PER DAY
     Route: 048
  4. TRILEPTAL [Concomitant]
     Indication: FRONTAL LOBE EPILEPSY
     Dosage: 600MG TWICE PER DAY
     Route: 048

REACTIONS (5)
  - Hallucination, visual [Recovering/Resolving]
  - Delirium [Recovering/Resolving]
  - Psychiatric decompensation [Recovering/Resolving]
  - Aggression [Recovering/Resolving]
  - Abnormal behaviour [Recovering/Resolving]
